FAERS Safety Report 11382898 (Version 2)
Quarter: 2015Q3

REPORT INFORMATION
  Report Type: Spontaneous
  Country: FI (occurrence: FI)
  Receive Date: 20150814
  Receipt Date: 20150925
  Transmission Date: 20151125
  Serious: Yes (Other)
  Sender: FDA-Public Use
  Company Number: FI-PFIZER INC-2015266622

PATIENT
  Age: 30 Year
  Sex: Female

DRUGS (9)
  1. LYRICA [Suspect]
     Active Substance: PREGABALIN
     Dosage: 150 MG, 2X/DAY
     Dates: start: 20080628, end: 20081120
  2. ARCOXIA [Concomitant]
     Active Substance: ETORICOXIB
     Dosage: UNK, AS NEEDED
  3. METHADONE [Concomitant]
     Active Substance: METHADONE HYDROCHLORIDE
     Dosage: 115 MG, DAILY
     Dates: start: 200708
  4. METFORMIN [Concomitant]
     Active Substance: METFORMIN HYDROCHLORIDE
     Dosage: 500 MG, 2X/DAY
  5. ATARAX [Concomitant]
     Active Substance: HYDROXYZINE\HYDROXYZINE HYDROCHLORIDE
     Dosage: 100 MG, DAILY
  6. NEURONTIN [Concomitant]
     Active Substance: GABAPENTIN
  7. IMODIUM [Concomitant]
     Active Substance: LOPERAMIDE HYDROCHLORIDE
     Dosage: 2 MG, AS A COURSE
  8. LYRICA [Suspect]
     Active Substance: PREGABALIN
     Indication: FRACTURE PAIN
     Dosage: 150 MG, 1X/DAY
     Dates: start: 20080624, end: 20080627
  9. VOLTAREN [Concomitant]
     Active Substance: DICLOFENAC SODIUM
     Dosage: UNK, AS NEEDED

REACTIONS (3)
  - Product use issue [Unknown]
  - Drug abuse [Unknown]
  - Somnolence [Unknown]

NARRATIVE: CASE EVENT DATE: 2008
